FAERS Safety Report 8967833 (Version 1)
Quarter: 2012Q4

REPORT INFORMATION
  Report Type: Spontaneous
  Country: US (occurrence: None)
  Receive Date: 20121213
  Receipt Date: 20121213
  Transmission Date: 20130627
  Serious: Yes (Hospitalization)
  Sender: FDA-Public Use
  Company Number: None

PATIENT
  Age: 68 Year
  Sex: Female
  Weight: 61 kg

DRUGS (6)
  1. OXALIPLATIN [Suspect]
     Dates: start: 20121126, end: 20121205
  2. LEUCOVORIN [Concomitant]
  3. MAGNESIUM SULFATE [Concomitant]
  4. CALCIUM GLUCONATE [Concomitant]
  5. PALONOSETRON [Concomitant]
  6. DECADRON [Concomitant]

REACTIONS (9)
  - Paraesthesia [None]
  - Pruritus [None]
  - Hypoaesthesia [None]
  - Abasia [None]
  - Eye disorder [None]
  - Somnolence [None]
  - Blood pressure increased [None]
  - Heart rate increased [None]
  - Tachypnoea [None]
